FAERS Safety Report 8921721 (Version 1)
Quarter: 2012Q4

REPORT INFORMATION
  Report Type: Report from Study
  Country: CA (occurrence: CA)
  Receive Date: 20121121
  Receipt Date: 20121121
  Transmission Date: 20130627
  Serious: Yes (Other)
  Sender: FDA-Public Use
  Company Number: CA-ABBOTT-12P-028-0900608-00

PATIENT
  Sex: Female

DRUGS (2)
  1. HUMIRA 40 MG/0.8 ML PEN [Suspect]
     Indication: ANKYLOSING SPONDYLITIS
     Dates: start: 20111223
  2. PREDNISONE [Concomitant]
     Indication: ARTHRALGIA
     Dosage: 5MG 4 TIMES
     Route: 048
     Dates: start: 201209

REACTIONS (1)
  - Abortion spontaneous [Unknown]
